FAERS Safety Report 4765078-4 (Version None)
Quarter: 2005Q3

REPORT INFORMATION
  Report Type: 
  Country: None (occurrence: None)
  Receive Date: 20050907
  Receipt Date: 20050823
  Transmission Date: 20060218
  Serious: Yes (Hospitalization)
  Sender: FDA-Public Use
  Company Number: 194830

PATIENT
  Age: 59 Year
  Sex: Female
  Weight: 54.4316 kg

DRUGS (6)
  1. AVONEX [Suspect]
     Indication: MULTIPLE SCLEROSIS
     Dosage: SEE IMAGE
     Route: 030
     Dates: start: 20000301, end: 20031101
  2. AVONEX [Suspect]
     Indication: MULTIPLE SCLEROSIS
     Dosage: SEE IMAGE
     Route: 030
     Dates: start: 20031101, end: 20040101
  3. AVONEX [Suspect]
     Indication: MULTIPLE SCLEROSIS
     Dosage: SEE IMAGE
     Route: 030
     Dates: start: 20040201
  4. SYNTHROID [Concomitant]
  5. PAXIL [Concomitant]
  6. KLONOPIN [Concomitant]

REACTIONS (11)
  - ARTHROPOD BITE [None]
  - BLOOD CREATININE INCREASED [None]
  - BLOOD URINE PRESENT [None]
  - CARDIAC VALVE DISEASE [None]
  - DYSPHAGIA [None]
  - FALL [None]
  - HYPOTENSION [None]
  - KIDNEY INFECTION [None]
  - MULTIPLE SCLEROSIS RELAPSE [None]
  - PAIN [None]
  - WHITE BLOOD CELL COUNT DECREASED [None]
